FAERS Safety Report 14035485 (Version 1)
Quarter: 2017Q4

REPORT INFORMATION
  Report Type: Spontaneous
  Country: JP (occurrence: JP)
  Receive Date: 20171003
  Receipt Date: 20171003
  Transmission Date: 20180321
  Serious: Yes (Other)
  Sender: FDA-Public Use
  Company Number: JP-PFIZER INC-2017421543

PATIENT

DRUGS (3)
  1. ASPARA K [Suspect]
     Active Substance: POTASSIUM ASPARTATE
  2. GLUCONSAN K [Suspect]
     Active Substance: POTASSIUM GLUCONATE
  3. SELARA [Suspect]
     Active Substance: EPLERENONE
     Indication: HYPERTENSION
     Dosage: UNK

REACTIONS (2)
  - Hypokalaemia [Unknown]
  - Contraindicated drug prescribed [Unknown]
